FAERS Safety Report 23815750 (Version 1)
Quarter: 2024Q2

REPORT INFORMATION
  Report Type: Spontaneous
  Country: IT (occurrence: IT)
  Receive Date: 20240503
  Receipt Date: 20240503
  Transmission Date: 20240715
  Serious: Yes (Hospitalization, Other)
  Sender: FDA-Public Use
  Company Number: IT-MEITHEAL-2024MPLIT00108

PATIENT
  Age: 31 Year
  Sex: Male

DRUGS (9)
  1. OCTREOTIDE [Suspect]
     Active Substance: OCTREOTIDE\OCTREOTIDE ACETATE
     Indication: Hyperthyroidism
     Dosage: EVERY 28 DAYS
     Route: 065
  2. OCTREOTIDE [Suspect]
     Active Substance: OCTREOTIDE\OCTREOTIDE ACETATE
     Indication: Product use in unapproved indication
  3. DEXAMETHASONE [Concomitant]
     Active Substance: DEXAMETHASONE
     Indication: COVID-19
     Route: 065
  4. METHYLPREDNISOLONE [Concomitant]
     Active Substance: METHYLPREDNISOLONE
     Indication: Dyspnoea
     Route: 065
  5. DIGOXIN [Concomitant]
     Active Substance: DIGOXIN
     Route: 065
  6. METHIMAZOLE [Concomitant]
     Active Substance: METHIMAZOLE
     Indication: Hyperthyroidism
     Route: 065
  7. METHIMAZOLE [Concomitant]
     Active Substance: METHIMAZOLE
     Route: 065
  8. thionamide [Concomitant]
     Indication: Hyperthyroidism
     Route: 065
  9. VALPROIC ACID [Concomitant]
     Active Substance: VALPROIC ACID
     Indication: Affective disorder
     Route: 065

REACTIONS (4)
  - Suicidal ideation [Unknown]
  - Affective disorder [Unknown]
  - Condition aggravated [Unknown]
  - Product use in unapproved indication [Unknown]
